FAERS Safety Report 7044780-8 (Version None)
Quarter: 2010Q4

REPORT INFORMATION
  Report Type: 
  Country: None (occurrence: None)
  Receive Date: 20101014
  Receipt Date: 20100929
  Transmission Date: 20110411
  Serious: Yes (Other)
  Sender: FDA-Public Use
  Company Number: PHHY2010AT66699

PATIENT
  Age: 34 Year
  Sex: Female

DRUGS (3)
  1. DEFEROXAMINE MESYLATE [Suspect]
     Dosage: UNK
     Route: 058
  2. DEFEROXAMINE MESYLATE [Suspect]
     Dosage: 2 G, UNK
  3. DEFERASIROX [Suspect]
     Indication: THALASSAEMIA BETA
     Dosage: 20 MG/KG, QD
     Route: 048

REACTIONS (7)
  - BLOOD BILIRUBIN INCREASED [None]
  - BLOOD LACTATE DEHYDROGENASE INCREASED [None]
  - HAEMOLYSIS [None]
  - HYPOCHROMIC ANAEMIA [None]
  - JAUNDICE [None]
  - PANCYTOPENIA [None]
  - SPLENOMEGALY [None]
